FAERS Safety Report 10154214 (Version 1)
Quarter: 2014Q2

REPORT INFORMATION
  Report Type: Spontaneous
  Country: US (occurrence: US)
  Receive Date: 20140506
  Receipt Date: 20140506
  Transmission Date: 20141212
  Serious: No
  Sender: FDA-Public Use
  Company Number: US-PFIZER INC-2014120907

PATIENT
  Age: 84 Year
  Sex: Female

DRUGS (1)
  1. CHANTIX [Suspect]
     Indication: SMOKING CESSATION THERAPY
     Dosage: UNK
     Dates: start: 201404

REACTIONS (5)
  - Nervousness [Unknown]
  - Anxiety [Unknown]
  - Mood altered [Unknown]
  - Crying [Unknown]
  - Tobacco user [Unknown]
